FAERS Safety Report 5398624-0 (Version None)
Quarter: 2007Q3

REPORT INFORMATION
  Report Type: 
  Country: None (occurrence: None)
  Receive Date: 20070726
  Receipt Date: 20060601
  Transmission Date: 20080115
  Serious: No
  Sender: FDA-Public Use
  Company Number: US-AMGEN-KDL181824

PATIENT
  Sex: Female
  Weight: 79.5 kg

DRUGS (8)
  1. PROCRIT [Suspect]
     Indication: RENAL FAILURE CHRONIC
  2. AVAPRO [Concomitant]
  3. LIPITOR [Concomitant]
  4. PROTONIX [Concomitant]
  5. POLYSACCHARIDE-IRON COMPLEX [Concomitant]
  6. CALCIUM CHLORIDE [Concomitant]
  7. MAGNESIUM OXIDE [Concomitant]
  8. CALCITRIOL [Concomitant]

REACTIONS (1)
  - HAEMOGLOBIN DECREASED [None]
